FAERS Safety Report 8096751-0 (Version None)
Quarter: 2012Q1

REPORT INFORMATION
  Report Type: 
  Country: None (occurrence: None)
  Receive Date: 20120129
  Receipt Date: 20111229
  Transmission Date: 20120608
  Serious: No
  Sender: FDA-Public Use
  Company Number: US-ABBOTT-11P-163-0856463-00

PATIENT
  Sex: Female
  Weight: 113.5 kg

DRUGS (7)
  1. METHOTREXATE [Concomitant]
     Indication: PRODUCT USED FOR UNKNOWN INDICATION
  2. OTHER UNKNOWN MEDICATIONS [Concomitant]
     Indication: PRODUCT USED FOR UNKNOWN INDICATION
  3. ANTIBIOTICS [Concomitant]
     Indication: PRODUCT USED FOR UNKNOWN INDICATION
  4. PAIN MEDICATIONS [Concomitant]
     Indication: PRODUCT USED FOR UNKNOWN INDICATION
  5. HUMIRA [Suspect]
  6. AMYTRIPTYLLINE [Concomitant]
     Indication: ANXIETY
  7. HUMIRA [Suspect]
     Indication: CROHN'S DISEASE
     Dosage: DAY ONE
     Route: 058
     Dates: start: 20110830

REACTIONS (6)
  - PRE-EXISTING CONDITION IMPROVED [None]
  - INJECTION SITE PAIN [None]
  - INJECTION SITE SWELLING [None]
  - THERAPEUTIC RESPONSE UNEXPECTED [None]
  - BACK PAIN [None]
  - INJECTION SITE ERYTHEMA [None]
